FAERS Safety Report 7320510-7 (Version None)
Quarter: 2011Q1

REPORT INFORMATION
  Report Type: 
  Country: None (occurrence: None)
  Receive Date: 20110223
  Receipt Date: 20110223
  Transmission Date: 20110831
  Serious: Yes (Life-Threatening, Hospitalization)
  Sender: FDA-Public Use
  Company Number: None

PATIENT
  Age: 68 Year
  Sex: Female
  Weight: 54.4316 kg

DRUGS (1)
  1. FENTANYL-25 [Suspect]
     Indication: PAIN
     Dosage: 50 MCG 4 A DAY TRANSDERMAL
     Route: 062
     Dates: start: 20110131, end: 20110215

REACTIONS (7)
  - MEMORY IMPAIRMENT [None]
  - ASTHENIA [None]
  - MEDICATION ERROR [None]
  - OVERDOSE [None]
  - DYSPNOEA [None]
  - CONFUSIONAL STATE [None]
  - SOMNOLENCE [None]
